FAERS Safety Report 7031293-2 (Version None)
Quarter: 2010Q4

REPORT INFORMATION
  Report Type: 
  Country: None (occurrence: None)
  Receive Date: 20101006
  Receipt Date: 20100929
  Transmission Date: 20110411
  Serious: Yes (Other)
  Sender: FDA-Public Use
  Company Number: B0677246A

PATIENT

DRUGS (1)
  1. VALTREX [Suspect]
     Indication: PRODUCT USED FOR UNKNOWN INDICATION
     Dosage: 1000MG PER DAY
     Route: 048

REACTIONS (1)
  - AGRANULOCYTOSIS [None]
